FAERS Safety Report 6904941-2 (Version None)
Quarter: 2010Q3

REPORT INFORMATION
  Report Type: 
  Country: None (occurrence: None)
  Receive Date: 20100804
  Receipt Date: 20090810
  Transmission Date: 20110219
  Serious: No
  Sender: FDA-Public Use
  Company Number: US-PFIZER INC-2009234906

PATIENT
  Age: 34 Year
  Sex: Female

DRUGS (1)
  1. LYRICA [Suspect]
     Dosage: 150 MG, UNK

REACTIONS (6)
  - DYSPEPSIA [None]
  - FATIGUE [None]
  - IRRITABLE BOWEL SYNDROME [None]
  - NEURALGIA [None]
  - PAIN [None]
  - WEIGHT INCREASED [None]
